FAERS Safety Report 12464157 (Version 1)
Quarter: 2016Q2

REPORT INFORMATION
  Report Type: Spontaneous
  Country: US (occurrence: None)
  Receive Date: 20160613
  Receipt Date: 20160613
  Transmission Date: 20160815
  Serious: No
  Sender: FDA-Public Use
  Company Number: None

PATIENT
  Age: 78 Year
  Sex: Female
  Weight: 83.92 kg

DRUGS (5)
  1. DIFLUNISAL, 500MG TEVA USA [Suspect]
     Active Substance: DIFLUNISAL
     Indication: PROCEDURAL PAIN
     Route: 048
     Dates: start: 20160611
  2. DIFLUNISAL, 500MG TEVA USA [Suspect]
     Active Substance: DIFLUNISAL
     Indication: ENDODONTIC PROCEDURE
     Route: 048
     Dates: start: 20160611
  3. DIVALOPROEX SODIIUM [Concomitant]
  4. MELATONIN [Concomitant]
     Active Substance: MELATONIN
  5. FLUVOXAMINE MALEATE. [Concomitant]
     Active Substance: FLUVOXAMINE MALEATE

REACTIONS (6)
  - Insomnia [None]
  - Hypoaesthesia oral [None]
  - Hypoaesthesia [None]
  - Drug ineffective [None]
  - Swelling face [None]
  - Lip swelling [None]

NARRATIVE: CASE EVENT DATE: 20160611
